FAERS Safety Report 4475420-X (Version None)
Quarter: 2004Q4

REPORT INFORMATION
  Report Type: 
  Country: None (occurrence: None)
  Receive Date: 20041014
  Receipt Date: 20041014
  Transmission Date: 20050328
  Serious: Yes (Hospitalization)
  Sender: FDA-Public Use
  Company Number: None

PATIENT
  Age: 75 Year
  Sex: Female
  Weight: 61.2 kg

DRUGS (4)
  1. CYTOXAN [Suspect]
     Indication: LYMPHOMA
     Dosage: 4TH ROUND (REC'D)
  2. SYNTHROID [Concomitant]
  3. POTASSIUM [Concomitant]
  4. VICODIN [Concomitant]

REACTIONS (2)
  - DRUG TOXICITY [None]
  - PNEUMONITIS [None]
